FAERS Safety Report 7144577-4 (Version None)
Quarter: 2010Q4

REPORT INFORMATION
  Report Type: 
  Country: None (occurrence: None)
  Receive Date: 20101208
  Receipt Date: 20100402
  Transmission Date: 20110411
  Serious: Yes (Hospitalization)
  Sender: FDA-Public Use
  Company Number: US-BAYER-201019760NA

PATIENT
  Sex: Female
  Weight: 118.18 kg

DRUGS (13)
  1. YAZ [Suspect]
     Indication: HOT FLUSH
     Route: 048
     Dates: start: 20070101, end: 20080101
  2. YASMIN [Suspect]
     Route: 048
  3. AMITRIPTYLINE [Concomitant]
     Indication: HEADACHE
     Dates: start: 19960101
  4. AMBIEN [Concomitant]
  5. DILTIAZEM [Concomitant]
  6. FISH OIL [Concomitant]
  7. PRILOSEC [Concomitant]
  8. ZOMIG [Concomitant]
     Route: 045
  9. ADVIL [Concomitant]
     Dates: start: 20080215
  10. ADVIL [Concomitant]
     Indication: HEADACHE
  11. UNCODEABLE ^UNCLASSIFIABLE^ [Concomitant]
     Dates: start: 20080201
  12. UNCODEABLE ^UNCLASSIFIABLE^ [Concomitant]
     Indication: HEADACHE
  13. ELAVIL [Concomitant]

REACTIONS (15)
  - ADNEXA UTERI MASS [None]
  - ANAEMIA [None]
  - ASTHENIA [None]
  - BLOOD POTASSIUM DECREASED [None]
  - CONDITION AGGRAVATED [None]
  - DEEP VEIN THROMBOSIS [None]
  - DYSPNOEA [None]
  - EMBOLISM VENOUS [None]
  - ESSENTIAL HYPERTENSION [None]
  - HYPONATRAEMIA [None]
  - MALAISE [None]
  - MAY-THURNER SYNDROME [None]
  - OBESITY [None]
  - RASH [None]
  - TACHYCARDIA [None]
